FAERS Safety Report 7538954-7 (Version None)
Quarter: 2011Q2

REPORT INFORMATION
  Report Type: 
  Country: None (occurrence: None)
  Receive Date: 20110603
  Receipt Date: 20110520
  Transmission Date: 20111010
  Serious: Yes (Disabling, Other)
  Sender: FDA-Public Use
  Company Number: 2011-1123

PATIENT
  Age: 61 Year
  Sex: Male

DRUGS (4)
  1. RAMIPRIL [Concomitant]
  2. ASPIRIN [Concomitant]
  3. ATORVASTATIN [Concomitant]
  4. DYSPORT [Suspect]
     Indication: MUSCLE SPASTICITY
     Dosage: 1000 UNITS (1000 UNITS,SINGLE CYCLE), INTRAMUSCULAR
     Route: 030
     Dates: start: 20110217, end: 20110217

REACTIONS (15)
  - DYSPHONIA [None]
  - DYSPNOEA [None]
  - NECK PAIN [None]
  - TOXICITY TO VARIOUS AGENTS [None]
  - LETHARGY [None]
  - VISION BLURRED [None]
  - HYPOAESTHESIA FACIAL [None]
  - VISUAL ACUITY REDUCED [None]
  - DIPLOPIA [None]
  - ASTHENIA [None]
  - EYELID DISORDER [None]
  - VISUAL IMPAIRMENT [None]
  - DRY MOUTH [None]
  - SPEECH DISORDER [None]
  - HEADACHE [None]
